FAERS Safety Report 5626209-7 (Version None)
Quarter: 2008Q1

REPORT INFORMATION
  Report Type: 
  Country: None (occurrence: None)
  Receive Date: 20080214
  Receipt Date: 20080213
  Transmission Date: 20080703
  Serious: Yes (Other)
  Sender: FDA-Public Use
  Company Number: A0709378A

PATIENT
  Sex: Male

DRUGS (2)
  1. WELLBUTRIN [Suspect]
     Indication: DRUG USE FOR UNKNOWN INDICATION
     Dosage: 300MG UNKNOWN
     Route: 048
  2. CELEXA [Concomitant]

REACTIONS (3)
  - IRRITABLE BOWEL SYNDROME [None]
  - NEUROPATHY PERIPHERAL [None]
  - OVERDOSE [None]
